FAERS Safety Report 6060676-2 (Version None)
Quarter: 2009Q1

REPORT INFORMATION
  Report Type: 
  Country: None (occurrence: None)
  Receive Date: 20090130
  Receipt Date: 20090130
  Transmission Date: 20090719
  Serious: No
  Sender: FDA-Public Use
  Company Number: None

PATIENT
  Age: 54 Year
  Sex: Female
  Weight: 62.5964 kg

DRUGS (1)
  1. ARMOUR THYROID, 1/2 GR. FOREST LAB [Suspect]
     Indication: HYPOTHYROIDISM
     Dosage: 1/2 GR 4X/DAY ORAL
     Route: 048
     Dates: start: 20071213, end: 20080503

REACTIONS (3)
  - INSOMNIA [None]
  - PRODUCT QUALITY ISSUE [None]
  - WEIGHT DECREASED [None]
